FAERS Safety Report 8957132 (Version 1)
Quarter: 2012Q4

REPORT INFORMATION
  Report Type: Spontaneous
  Country: US (occurrence: None)
  Receive Date: 20121205
  Receipt Date: 20121205
  Transmission Date: 20130627
  Serious: Yes (Life-Threatening, Hospitalization)
  Sender: FDA-Public Use
  Company Number: None

PATIENT
  Age: 62 Year
  Sex: Female
  Weight: 63 kg

DRUGS (1)
  1. DABIGATRAN [Suspect]
     Indication: DVT
     Route: 048
     Dates: start: 20120813, end: 20120814

REACTIONS (5)
  - Haematocrit decreased [None]
  - Creatinine renal clearance decreased [None]
  - Headache [None]
  - Vision blurred [None]
  - Cerebral haematoma [None]
